FAERS Safety Report 10512245 (Version 1)
Quarter: 2014Q3

REPORT INFORMATION
  Report Type: Spontaneous
  Country: US (occurrence: None)
  Receive Date: 20140926
  Receipt Date: 20140926
  Transmission Date: 20150326
  Serious: No
  Sender: FDA-Public Use
  Company Number: 1000070078

PATIENT
  Sex: Female

DRUGS (1)
  1. LINZESS [Suspect]
     Active Substance: LINACLOTIDE
     Indication: IRRITABLE BOWEL SYNDROME
     Dosage: 145MCG (145 MCG, 1 IN 1 D), ORAL
     Route: 048
     Dates: start: 2013, end: 2013

REACTIONS (5)
  - Off label use [None]
  - Flatulence [None]
  - Abdominal pain [None]
  - Gastrointestinal pain [None]
  - Abdominal distension [None]

NARRATIVE: CASE EVENT DATE: 2013
